FAERS Safety Report 22246056 (Version 2)
Quarter: 2023Q2

REPORT INFORMATION
  Report Type: Spontaneous
  Country: US (occurrence: US)
  Receive Date: 20230424
  Receipt Date: 20230529
  Transmission Date: 20230721
  Serious: No
  Sender: FDA-Public Use
  Company Number: US-TRIS PHARMA, INC.-23US010838

PATIENT

DRUGS (3)
  1. DYANAVEL XR [Suspect]
     Active Substance: AMPHETAMINE
     Indication: Attention deficit hyperactivity disorder
     Dosage: 4 MILLILITRE, QD
     Route: 048
     Dates: start: 20230329
  2. DYANAVEL XR [Suspect]
     Active Substance: AMPHETAMINE
     Dosage: 4 MILLILITRE, QD
     Route: 048
     Dates: start: 202208
  3. VITAMINS NOS [Concomitant]
     Active Substance: VITAMINS
     Indication: Supplementation therapy
     Dosage: UNK, QD
     Route: 048

REACTIONS (3)
  - Syringe issue [Unknown]
  - Dose calculation error [Unknown]
  - Dermatillomania [Recovering/Resolving]
